APPROVED DRUG PRODUCT: SOFOSBUVIR
Active Ingredient: SOFOSBUVIR
Strength: 400MG
Dosage Form/Route: TABLET;ORAL
Application: A211353 | Product #001
Applicant: TEVA PHARMACEUTICALS USA INC
Approved: Jan 27, 2022 | RLD: No | RS: No | Type: DISCN